FAERS Safety Report 5919581-1 (Version None)
Quarter: 2008Q4

REPORT INFORMATION
  Report Type: 
  Country: None (occurrence: None)
  Receive Date: 20081015
  Receipt Date: 20080312
  Transmission Date: 20090506
  Serious: No
  Sender: FDA-Public Use
  Company Number: US-BRISTOL-MYERS SQUIBB COMPANY-14114631

PATIENT

DRUGS (1)
  1. KENALOG-40 [Suspect]
     Dosage: RECIEVED 2 INJECTIONS IN TOTAL.

REACTIONS (1)
  - HYPERSENSITIVITY [None]
